FAERS Safety Report 6425590-9 (Version None)
Quarter: 2009Q4

REPORT INFORMATION
  Report Type: 
  Country: None (occurrence: None)
  Receive Date: 20091103
  Receipt Date: 20091022
  Transmission Date: 20100525
  Serious: Yes (Other)
  Sender: FDA-Public Use
  Company Number: US-PFIZER INC-2009268979

PATIENT
  Sex: Female
  Weight: 67.131 kg

DRUGS (24)
  1. LYRICA [Suspect]
     Indication: PAIN
     Dosage: UNK
     Route: 048
     Dates: start: 20080101, end: 20080101
  2. MORPHINE HCL ELIXIR [Suspect]
  3. LOVENOX [Suspect]
     Indication: HEART VALVE REPLACEMENT
     Dosage: FREQUENCY: 2X/DAY,
  4. NARDIL [Concomitant]
     Dosage: FREQUENCY: 2X/DAY,
     Route: 048
  5. VITAMIN D [Concomitant]
     Dosage: 50000 IU, WEEKLY
     Route: 048
  6. FUROSEMIDE [Concomitant]
     Dosage: 80 MG, 1X/DAY
     Route: 048
  7. PREMARIN [Concomitant]
     Dosage: 0.3 MG, 1X/DAY
     Route: 048
  8. LEVOTHROID [Concomitant]
     Dosage: 0.137 MG, 1X/DAY
     Route: 048
  9. KLOR-CON [Concomitant]
     Dosage: 20 MEQ, 1X/DAY
     Route: 048
  10. OMEPRAZOLE [Concomitant]
     Dosage: 20 MG, 1X/DAY
     Route: 048
  11. ACTONEL [Concomitant]
     Indication: OSTEOPOROSIS
     Dosage: 35 MG, 1X/DAY
     Route: 048
  12. BACLOFEN [Concomitant]
     Dosage: FREQUENCY: 2X/DAY,
     Route: 048
  13. VITAMIN TAB [Concomitant]
     Dosage: DAILY
  14. VITAMIN B-12 [Concomitant]
     Dosage: FREQUENCY: ONCE A MONTH,
  15. PROMETHAZINE [Concomitant]
     Dosage: FREQUENCY: 4X/DAY,
     Route: 048
  16. FERROUS SULFATE [Concomitant]
     Dosage: FREQUENCY: 2X/DAY,
     Route: 048
  17. TRAZODONE [Concomitant]
     Dosage: 150 MG, 1X/DAY
  18. DIAZEPAM [Concomitant]
     Dosage: 5 MG TO 10 MG, 4 TIMES PER DAY
     Route: 048
  19. MORPHINE SULFATE [Concomitant]
     Dosage: FREQUENCY: 4X/DAY,
  20. CANNABIS [Concomitant]
     Indication: PAIN
  21. CANNABIS [Concomitant]
     Indication: DEPRESSION
  22. CANNABIS [Concomitant]
     Indication: ANXIETY
  23. ACETAMINOPHEN [Concomitant]
     Dosage: FREQUENCY: 3X/DAY,
  24. DOCUSATE SODIUM [Concomitant]

REACTIONS (8)
  - BLOOD BLISTER [None]
  - COMA [None]
  - DRUG INEFFECTIVE [None]
  - GASTROINTESTINAL NECROSIS [None]
  - HAEMORRHAGE [None]
  - LIVER DISORDER [None]
  - PULMONARY HYPERTENSION [None]
  - WEIGHT INCREASED [None]
